FAERS Safety Report 20091178 (Version 6)
Quarter: 2023Q4

REPORT INFORMATION
  Report Type: Report from Study
  Country: CO (occurrence: CO)
  Receive Date: 20211119
  Receipt Date: 20231004
  Transmission Date: 20240110
  Serious: Yes (Other)
  Sender: FDA-Public Use
  Company Number: CO-TAKEDA-2021TUS045963

PATIENT
  Age: 7 Year
  Sex: Male
  Weight: 23.2 kg

DRUGS (2)
  1. HUMAN IMMUNOGLOBULIN G\HYALURONIDASE RECOMBINANT HUMAN [Suspect]
     Active Substance: HUMAN IMMUNOGLOBULIN G\HYALURONIDASE (HUMAN RECOMBINANT)
     Indication: Primary immunodeficiency syndrome
     Dosage: 15 GRAM, Q3WEEKS
     Route: 058
     Dates: start: 20201123
  2. HUMAN IMMUNOGLOBULIN G\HYALURONIDASE RECOMBINANT HUMAN [Suspect]
     Active Substance: HUMAN IMMUNOGLOBULIN G\HYALURONIDASE (HUMAN RECOMBINANT)
     Dosage: 20 GRAM, Q3WEEKS
     Route: 058
     Dates: start: 20201123

REACTIONS (14)
  - Productive cough [Recovering/Resolving]
  - Suspected COVID-19 [Unknown]
  - Pneumonia [Unknown]
  - Cough [Recovering/Resolving]
  - Body height increased [Unknown]
  - Weight increased [Unknown]
  - Balance disorder [Recovering/Resolving]
  - Rhinorrhoea [Recovering/Resolving]
  - Diarrhoea [Recovering/Resolving]
  - Vomiting [Recovering/Resolving]
  - Pyrexia [Recovered/Resolved]
  - Product prescribing error [Unknown]
  - Product use issue [Unknown]
  - Product dose omission issue [Unknown]

NARRATIVE: CASE EVENT DATE: 20210718
